FAERS Safety Report 4708553-0 (Version None)
Quarter: 2005Q3

REPORT INFORMATION
  Report Type: 
  Country: None (occurrence: None)
  Receive Date: 20050707
  Receipt Date: 20050630
  Transmission Date: 20060218
  Serious: Yes (Hospitalization)
  Sender: FDA-Public Use
  Company Number: CH-GLAXOSMITHKLINE-B0386857A

PATIENT
  Age: 64 Year
  Sex: Female

DRUGS (4)
  1. ZINACEF [Suspect]
     Indication: DRUG USE FOR UNKNOWN INDICATION
     Dosage: 750MG THREE TIMES PER DAY
     Route: 042
     Dates: start: 20050517, end: 20050518
  2. DICLOFENAC SODIUM + MISOPROSTOL [Suspect]
     Indication: DRUG USE FOR UNKNOWN INDICATION
     Route: 048
     Dates: start: 20050520, end: 20050530
  3. METAMIZOLE SODIUM [Suspect]
     Indication: DRUG USE FOR UNKNOWN INDICATION
     Route: 048
     Dates: start: 20050517, end: 20050526
  4. CALCITONIN-SALMON [Concomitant]
     Dates: start: 20050525, end: 20050530

REACTIONS (15)
  - ASPARTATE AMINOTRANSFERASE INCREASED [None]
  - BLOOD ALKALINE PHOSPHATASE INCREASED [None]
  - BLOOD CREATININE INCREASED [None]
  - COUGH [None]
  - EOSINOPHILIA [None]
  - EOSINOPHILIC PNEUMONIA [None]
  - GAMMA-GLUTAMYLTRANSFERASE INCREASED [None]
  - LEUKOCYTOCLASTIC VASCULITIS [None]
  - LEUKOCYTOSIS [None]
  - LIVER DISORDER [None]
  - LYMPHADENOPATHY [None]
  - PETECHIAE [None]
  - PRURITUS [None]
  - RENAL IMPAIRMENT [None]
  - WHITE BLOOD CELL COUNT INCREASED [None]
